FAERS Safety Report 9734033 (Version 4)
Quarter: 2014Q1

REPORT INFORMATION
  Report Type: Report from Study
  Country: IT (occurrence: IT)
  Receive Date: 20131205
  Receipt Date: 20140224
  Transmission Date: 20141002
  Serious: Yes (Other)
  Sender: FDA-Public Use
  Company Number: IT-UCBSA-105236

PATIENT
  Age: 69 Year
  Sex: Female
  Weight: 78 kg

DRUGS (9)
  1. CERTOLIZUMAB PEGOL [Suspect]
     Indication: RHEUMATOID ARTHRITIS
     Dosage: DOSE: 200 MG; 400 MG; MAINTANENCE PHASE; NO OF DOSES RECEIVED: 24
     Route: 058
     Dates: start: 20130227, end: 20131125
  2. FOLIC ACID [Concomitant]
     Indication: RHEUMATOID ARTHRITIS
     Dosage: 5 MG/WEEK
     Route: 048
     Dates: start: 20100110, end: 201312
  3. METHOTREXATE [Concomitant]
     Indication: RHEUMATOID ARTHRITIS
     Dosage: 10 MG QS
     Dates: start: 20100110, end: 201312
  4. CALCIUM [Concomitant]
     Indication: OSTEOPOROSIS
     Dosage: QD
     Route: 048
     Dates: start: 20090302
  5. LERCANIDIPINE [Concomitant]
     Indication: HYPERTENSION
     Dosage: QD
     Route: 048
     Dates: start: 20110930, end: 201312
  6. CARMO ASPIRIN [Concomitant]
     Indication: HYPERTENSION
     Route: 048
     Dates: start: 20110930, end: 201312
  7. IRBESARTAN/IDROCHLOROTIAZIDE [Concomitant]
     Dosage: DAILY DOSE: 300 MG+12.5 MG
     Dates: start: 201109, end: 201312
  8. CALCIOCARBONATO+COLECALCIFEROLO [Concomitant]
     Dosage: DAILY DOSE: 1250 MG+400 UI
     Dates: start: 200903, end: 201312
  9. ALLOPURINOLO [Concomitant]
     Dosage: DAILY DOSE: 100 MG
     Dates: start: 201301, end: 201312

REACTIONS (1)
  - Lobular breast carcinoma in situ [Recovered/Resolved]
